FAERS Safety Report 19078019 (Version 1)
Quarter: 2021Q1

REPORT INFORMATION
  Report Type: Spontaneous
  Country: US (occurrence: US)
  Receive Date: 20210331
  Receipt Date: 20210331
  Transmission Date: 20210420
  Serious: No
  Sender: FDA-Public Use
  Company Number: None

PATIENT
  Age: 47 Year
  Sex: Female

DRUGS (1)
  1. GLATIRAMER ACETATE SOLN PREFILLED SYRINGE [Suspect]
     Active Substance: GLATIRAMER ACETATE
     Route: 058
     Dates: start: 2015, end: 20210312

REACTIONS (4)
  - Headache [None]
  - Hyperhidrosis [None]
  - Vision blurred [None]
  - Dyspnoea [None]

NARRATIVE: CASE EVENT DATE: 20210312
